FAERS Safety Report 17908988 (Version 1)
Quarter: 2020Q2

REPORT INFORMATION
  Report Type: Spontaneous
  Country: US (occurrence: US)
  Receive Date: 20200617
  Receipt Date: 20200617
  Transmission Date: 20200714
  Serious: Yes (Other)
  Sender: FDA-Public Use
  Company Number: US-GILEAD-2020-0472661

PATIENT
  Age: 61 Year
  Sex: Male

DRUGS (17)
  1. ZYLOPRIM [Concomitant]
     Active Substance: ALLOPURINOL
  2. NALOXONE [Concomitant]
     Active Substance: NALOXONE
  3. ATIVAN [Concomitant]
     Active Substance: LORAZEPAM
  4. ZOFRAN [Concomitant]
     Active Substance: ONDANSETRON HYDROCHLORIDE
  5. LEVAQUIN [Concomitant]
     Active Substance: LEVOFLOXACIN
  6. YESCARTA [Suspect]
     Active Substance: AXICABTAGENE CILOLEUCEL
     Indication: DIFFUSE LARGE B-CELL LYMPHOMA
     Dosage: UNK
     Route: 065
     Dates: start: 20191021, end: 20191021
  7. ZOVIRAX [Concomitant]
     Active Substance: ACYCLOVIR
  8. LIPITOR [Concomitant]
     Active Substance: ATORVASTATIN CALCIUM
  9. KEPPRA [Concomitant]
     Active Substance: LEVETIRACETAM
     Dosage: UNK
     Dates: start: 20191020, end: 20191031
  10. FLUDARABINE [Concomitant]
     Active Substance: FLUDARABINE PHOSPHATE
     Dosage: UNK
     Dates: start: 20191016, end: 20191018
  11. HYDROCHLOROTHIAZIDE AND LISINOPRIL [Concomitant]
     Active Substance: HYDROCHLOROTHIAZIDE\LISINOPRIL
  12. BACTRIM DS [Concomitant]
     Active Substance: SULFAMETHOXAZOLE\TRIMETHOPRIM
  13. CYTOXAN [Concomitant]
     Active Substance: CYCLOPHOSPHAMIDE
     Dosage: UNK
     Dates: start: 20191016, end: 20191018
  14. COLACE [Concomitant]
     Active Substance: DOCUSATE SODIUM
  15. NORCO [Concomitant]
     Active Substance: ACETAMINOPHEN\HYDROCODONE BITARTRATE
  16. TOCILIZUMAB. [Concomitant]
     Active Substance: TOCILIZUMAB
     Dosage: UNK
     Dates: start: 20191022, end: 20191022
  17. TOCILIZUMAB. [Concomitant]
     Active Substance: TOCILIZUMAB
     Dosage: UNK
     Dates: start: 20191025, end: 20191025

REACTIONS (3)
  - Delirium [Recovered/Resolved]
  - Neurotoxicity [Recovered/Resolved]
  - Encephalopathy [Recovered/Resolved]

NARRATIVE: CASE EVENT DATE: 20191025
